FAERS Safety Report 5291205-9 (Version None)
Quarter: 2007Q3

REPORT INFORMATION
  Report Type: 
  Country: None (occurrence: None)
  Receive Date: 20070409
  Receipt Date: 20070328
  Transmission Date: 20080115
  Serious: Yes (Hospitalization)
  Sender: FDA-Public Use
  Company Number: UA-SHR-UA-2006-041210

PATIENT
  Age: 52 Year
  Sex: Female

DRUGS (8)
  1. CAMPATH [Suspect]
     Dosage: 30 MG/D, 1X/DAY
     Route: 042
     Dates: start: 20060904, end: 20061128
  2. CAMPATH [Suspect]
     Dosage: 3 MG, 1 DOSE
     Route: 042
     Dates: start: 20060830, end: 20060830
  3. CAMPATH [Suspect]
     Dosage: 10 MG, 1 DOSE
     Route: 042
     Dates: start: 20060831, end: 20060831
  4. CAMPATH [Suspect]
     Dosage: 30 MG, 1 DOSE
     Route: 042
     Dates: start: 20001230, end: 20060901
  5. FLUDARABINE PHOSPHATE [Suspect]
     Dosage: 54 MG/D, 1X/DAY
     Route: 042
     Dates: start: 20060904, end: 20061128
  6. ACYCLOVIR [Concomitant]
     Indication: INFECTION PROPHYLAXIS
     Route: 048
     Dates: start: 20060901
  7. CO-TRIMOXAZOLE [Concomitant]
     Indication: INFECTION PROPHYLAXIS
     Route: 048
     Dates: start: 20060901
  8. ARGININE [Concomitant]
     Dosage: 750 MG, UNK
     Route: 048
     Dates: start: 20060905, end: 20061227

REACTIONS (1)
  - HEPATITIS TOXIC [None]
